FAERS Safety Report 20704283 (Version 2)
Quarter: 2022Q3

REPORT INFORMATION
  Report Type: Spontaneous
  Country: DE (occurrence: DE)
  Receive Date: 20220413
  Receipt Date: 20220909
  Transmission Date: 20221027
  Serious: Yes (Life-Threatening, Hospitalization, Other)
  Sender: FDA-Public Use
  Company Number: DE-BoehringerIngelheim-2022-BI-165075

PATIENT
  Age: 83 Year
  Sex: Male

DRUGS (9)
  1. JARDIANCE [Suspect]
     Active Substance: EMPAGLIFLOZIN
     Indication: Type 2 diabetes mellitus
     Route: 048
     Dates: end: 20220403
  2. L-Thyroxin 50 mcg [Concomitant]
     Indication: Product used for unknown indication
     Dosage: 1-0-0
  3. Sitgliptin/Metformin 50/1000 [Concomitant]
     Indication: Product used for unknown indication
     Dosage: 50/1000
     Route: 048
  4. Clopidogrel 75 [Concomitant]
     Indication: Product used for unknown indication
     Dosage: 75
     Route: 048
  5. ASPIRIN [Concomitant]
     Active Substance: ASPIRIN
     Indication: Product used for unknown indication
     Dosage: 100
     Route: 048
  6. BISOPROLOL [Concomitant]
     Active Substance: BISOPROLOL
     Indication: Product used for unknown indication
     Dosage: 2.5
     Route: 048
  7. CANDESARTAN [Concomitant]
     Active Substance: CANDESARTAN
     Indication: Product used for unknown indication
     Route: 048
  8. ROSUVASTATIN [Concomitant]
     Active Substance: ROSUVASTATIN
     Indication: Product used for unknown indication
     Route: 048
  9. Tinzaparin 4500 IU [Concomitant]
     Indication: Product used for unknown indication
     Route: 058

REACTIONS (3)
  - Ketoacidosis [Recovered/Resolved]
  - Ischaemic stroke [Unknown]
  - Altered state of consciousness [Unknown]

NARRATIVE: CASE EVENT DATE: 20220403
